FAERS Safety Report 22751769 (Version 4)
Quarter: 2025Q2

REPORT INFORMATION
  Report Type: Report from Study
  Country: US (occurrence: US)
  Receive Date: 20230726
  Receipt Date: 20250426
  Transmission Date: 20250717
  Serious: Yes (Other)
  Sender: ABBVIE
  Company Number: US-ABBVIE-5340855

PATIENT
  Age: 59 Year
  Sex: Male
  Weight: 92.986 kg

DRUGS (2)
  1. HUMIRA [Suspect]
     Active Substance: ADALIMUMAB
     Indication: Psoriasis
     Dosage: CITRATE FREE/FORM STRENGTH: 40 MILLIGRAMS
     Route: 058
     Dates: start: 20170312, end: 202309
  2. HUMIRA [Suspect]
     Active Substance: ADALIMUMAB
     Dosage: CITRATE FREE/FORM STRENGTH: 40 MILLIGRAMS
     Route: 058
     Dates: start: 2023

REACTIONS (5)
  - Meniscal degeneration [Recovered/Resolved]
  - Osteoarthritis [Recovering/Resolving]
  - Joint warmth [Not Recovered/Not Resolved]
  - Ligament sprain [Unknown]
  - Arthralgia [Not Recovered/Not Resolved]

NARRATIVE: CASE EVENT DATE: 20190101
